FAERS Safety Report 12579440 (Version 1)
Quarter: 2016Q3

REPORT INFORMATION
  Report Type: Spontaneous
  Country: BR (occurrence: BR)
  Receive Date: 20160721
  Receipt Date: 20160721
  Transmission Date: 20161109
  Serious: Yes (Other)
  Sender: FDA-Public Use
  Company Number: BR-GLAXOSMITHKLINE-BR2016GSK100626

PATIENT
  Sex: Female
  Weight: 55 kg

DRUGS (2)
  1. SERETIDE [Suspect]
     Active Substance: FLUTICASONE PROPIONATE\SALMETEROL XINAFOATE
     Indication: BRONCHITIS
     Dosage: 1 PUFF(S), BID
     Dates: start: 2009
  2. AEROLIN [Suspect]
     Active Substance: ALBUTEROL
     Indication: BRONCHITIS

REACTIONS (13)
  - Drug ineffective [Unknown]
  - Hypersensitivity [Unknown]
  - Tachycardia [Unknown]
  - Medication error [Unknown]
  - Inappropriate schedule of drug administration [Unknown]
  - Bronchitis [Unknown]
  - Off label use [Unknown]
  - Influenza [Unknown]
  - Fatigue [Unknown]
  - Extra dose administered [Unknown]
  - Laryngeal oedema [Unknown]
  - Dyspnoea [Unknown]
  - Mobility decreased [Unknown]
